FAERS Safety Report 25213922 (Version 1)
Quarter: 2025Q2

REPORT INFORMATION
  Report Type: Spontaneous
  Country: DE (occurrence: DE)
  Receive Date: 20250418
  Receipt Date: 20250418
  Transmission Date: 20250717
  Serious: Yes (Other)
  Sender: TEVA
  Company Number: DE-EMB-M202309198-1

PATIENT
  Sex: Female
  Weight: 130 kg

DRUGS (3)
  1. METOPROLOL [Suspect]
     Active Substance: METOPROLOL
     Indication: Hypertension
     Route: 048
  2. METHYLDOPA [Suspect]
     Active Substance: METHYLDOPA
     Indication: Hypertension
     Dosage: MEDICATION DOSED IN, UP TO 4X500 MG/D
     Route: 048
     Dates: start: 202310, end: 202311
  3. ASPIRIN [Suspect]
     Active Substance: ASPIRIN
     Indication: Thrombosis prophylaxis
     Route: 048
     Dates: start: 202310, end: 202311

REACTIONS (3)
  - Abortion spontaneous [Recovered/Resolved]
  - Foetal growth restriction [Not Recovered/Not Resolved]
  - Exposure during pregnancy [Unknown]
